FAERS Safety Report 6267581-7 (Version None)
Quarter: 2009Q3

REPORT INFORMATION
  Report Type: 
  Country: None (occurrence: None)
  Receive Date: 20090710
  Receipt Date: 20090702
  Transmission Date: 20100115
  Serious: Yes (Life-Threatening, Hospitalization)
  Sender: FDA-Public Use
  Company Number: SPV1-2009-01372

PATIENT
  Age: 74 Year
  Sex: Female
  Weight: 60 kg

DRUGS (18)
  1. FOSRENOL [Suspect]
     Indication: HYPERPHOSPHATAEMIA
     Dosage: 1000 G, 3X/DAY:TID, ORAL
     Route: 048
     Dates: start: 20090302, end: 20090426
  2. OMEPRAZOL /00661201/ (OMEPRAZOLE) [Concomitant]
  3. DEKRISTOL (COLECALCIFEROL) [Concomitant]
  4. ZEMPLAR [Concomitant]
  5. NEFROCARNIT (LEVOCARNITINE) [Concomitant]
  6. FERRLECIT /00345601/ (ASCORBIC ACID, FERRIC SODIUM CITRATE, FERROUS SU [Concomitant]
  7. VITAMIN B12 PLUS FOLIC ACID (CYANOCOBALAMIN, FOLIC ACID) [Concomitant]
  8. ARANESP [Concomitant]
  9. FUROSEMID 1A PHARM (FUROSEMIDE) [Concomitant]
  10. METOPROLOL TARTRATE [Concomitant]
  11. AMLOBETA (AMLODIPINE MESILATE) [Concomitant]
  12. LISIHEXAL /00894001/ (LISINOPRIL) [Concomitant]
  13. KINZALMONO (TELMISARTAN) [Concomitant]
  14. SIMVASTATIN [Concomitant]
  15. L-THYROX HEXAL (LEVOTHYROXINE SODIUM) [Concomitant]
  16. MIMPARA /01735301/ (CINACALCET) [Concomitant]
  17. RESTEX (BENSERAZIDE HYDROCHLORIDE, LEVODOPA) [Concomitant]
  18. RENAGEL [Concomitant]

REACTIONS (3)
  - PERITONEAL ADHESIONS [None]
  - PERITONITIS [None]
  - SMALL INTESTINAL PERFORATION [None]
